FAERS Safety Report 8307352-0 (Version None)
Quarter: 2012Q2

REPORT INFORMATION
  Report Type: 
  Country: None (occurrence: None)
  Receive Date: 20120420
  Receipt Date: 20120404
  Transmission Date: 20120825
  Serious: Yes (Disabling, Other)
  Sender: FDA-Public Use
  Company Number: MCA-N-12-022

PATIENT
  Age: 49 Year
  Sex: Male

DRUGS (1)
  1. LEVOFLOXACIN [Suspect]
     Indication: SINUSITIS
     Dosage: 500 MG + ORAL
     Route: 048

REACTIONS (6)
  - DIZZINESS [None]
  - CONFUSIONAL STATE [None]
  - OPTIC NEURITIS [None]
  - RESPIRATORY DISTRESS [None]
  - PAIN [None]
  - BLINDNESS UNILATERAL [None]
